FAERS Safety Report 20196267 (Version 1)
Quarter: 2021Q4

REPORT INFORMATION
  Report Type: Report from Study
  Country: US (occurrence: US)
  Receive Date: 20211216
  Receipt Date: 20211216
  Transmission Date: 20220304
  Serious: Yes (Death, Other)
  Sender: FDA-Public Use
  Company Number: US-GILEAD-2021-0561701

PATIENT
  Age: 64 Year
  Sex: Female

DRUGS (1)
  1. IDELALISIB [Suspect]
     Active Substance: IDELALISIB
     Indication: B-cell lymphoma
     Dosage: 150MG BY MOUTH TWICE DAILY
     Route: 048
     Dates: start: 202110, end: 202110

REACTIONS (1)
  - Death [Fatal]

NARRATIVE: CASE EVENT DATE: 20211024
